FAERS Safety Report 6852213-7 (Version None)
Quarter: 2010Q3

REPORT INFORMATION
  Report Type: 
  Country: None (occurrence: None)
  Receive Date: 20100717
  Receipt Date: 20071211
  Transmission Date: 20110219
  Serious: No
  Sender: FDA-Public Use
  Company Number: US-PFIZER INC-2007094922

PATIENT
  Age: 60 Year
  Sex: Female
  Weight: 53.2 kg

DRUGS (8)
  1. CHANTIX [Suspect]
     Indication: SMOKING CESSATION THERAPY
     Route: 048
     Dates: start: 20070101
  2. POTASSIUM CHLORIDE [Concomitant]
     Route: 048
  3. BLACK COHOSH [Concomitant]
     Route: 048
  4. AMBIEN [Concomitant]
     Route: 048
  5. REQUIP [Concomitant]
     Route: 048
  6. CRESTOR [Concomitant]
     Route: 048
  7. VITAMINS [Concomitant]
     Route: 048
  8. ALL OTHER THERAPEUTIC PRODUCTS [Concomitant]

REACTIONS (6)
  - ABDOMINAL PAIN [None]
  - CONSTIPATION [None]
  - DISCOMFORT [None]
  - ENERGY INCREASED [None]
  - FLATULENCE [None]
  - INSOMNIA [None]
